FAERS Safety Report 9552239 (Version 1)
Quarter: 2013Q2

REPORT INFORMATION
  Report Type: Spontaneous
  Country: US (occurrence: None)
  Receive Date: 20130524
  Receipt Date: 20130524
  Transmission Date: 20140414
  Serious: No
  Sender: FDA-Public Use
  Company Number: PHEH2013US004725

PATIENT
  Age: 37 Year
  Sex: Female
  Weight: 79.8 kg

DRUGS (1)
  1. GILENYA [Suspect]
     Indication: MULTIPLE SCLEROSIS
     Route: 048
     Dates: start: 20130206

REACTIONS (6)
  - Nasal discomfort [None]
  - Sinus disorder [None]
  - Ligament sprain [None]
  - Gait disturbance [None]
  - Fatigue [None]
  - Asthenia [None]
